FAERS Safety Report 4455821-6 (Version None)
Quarter: 2004Q3

REPORT INFORMATION
  Report Type: 
  Country: None (occurrence: None)
  Receive Date: 20040920
  Receipt Date: 20040903
  Transmission Date: 20050211
  Serious: Yes (Hospitalization)
  Sender: FDA-Public Use
  Company Number: DSA_60443_2004

PATIENT
  Age: 78 Year
  Sex: Male

DRUGS (6)
  1. DIAZEPAM [Suspect]
     Indication: GENERALISED ANXIETY DISORDER
     Dosage: 5 MG BID
  2. PAROXETINE HCL [Concomitant]
  3. LEVOTHYROXINE SODIUM [Concomitant]
  4. RABEPRAZOLE SODIUM [Concomitant]
  5. RANITIDINE [Concomitant]
  6. FINASTERIDE [Concomitant]

REACTIONS (1)
  - DELUSION OF REPLACEMENT [None]
